FAERS Safety Report 5531248-0 (Version None)
Quarter: 2007Q4

REPORT INFORMATION
  Report Type: 
  Country: None (occurrence: None)
  Receive Date: 20071127
  Receipt Date: 20071116
  Transmission Date: 20080405
  Serious: Yes (Death)
  Sender: FDA-Public Use
  Company Number: OMPQ-NO-0711S-1342

PATIENT
  Age: 55 Year
  Sex: Male

DRUGS (7)
  1. OMNIPAQUE 300 [Suspect]
     Indication: DRUG USE FOR UNKNOWN INDICATION
     Dosage: 100 MG, SINGLE DOSE, I.V.
     Route: 042
     Dates: start: 20071113, end: 20071113
  2. NORVASC [Concomitant]
  3. TENORMIN [Concomitant]
  4. URSODEOXYCHOLIC ACID (URSO) [Concomitant]
  5. ALLOPURINOL [Concomitant]
  6. AMINO ACIDS NOS (LIVACT) [Concomitant]
  7. KANAMYCIN [Concomitant]

REACTIONS (5)
  - ACUTE RESPIRATORY DISTRESS SYNDROME [None]
  - BLOOD PRESSURE DECREASED [None]
  - BLOOD PRESSURE INCREASED [None]
  - NO THERAPEUTIC RESPONSE [None]
  - NON-CARDIOGENIC PULMONARY OEDEMA [None]
